FAERS Safety Report 6601904-1 (Version None)
Quarter: 2010Q1

REPORT INFORMATION
  Report Type: 
  Country: None (occurrence: None)
  Receive Date: 20100218
  Receipt Date: 20100208
  Transmission Date: 20100710
  Serious: No
  Sender: FDA-Public Use
  Company Number: JP 2010 0005

PATIENT
  Age: 57 Year
  Sex: Male

DRUGS (1)
  1. HEXABRIX [Suspect]
     Indication: ANGIOGRAM
     Dosage: 9 ML PER DAY, INTRA-ARTERIAL
     Route: 013

REACTIONS (5)
  - ANAPHYLACTIC SHOCK [None]
  - BACK PAIN [None]
  - DEFAECATION URGENCY [None]
  - NAUSEA [None]
  - OXYGEN SATURATION DECREASED [None]
